FAERS Safety Report 17223126 (Version 1)
Quarter: 2020Q1

REPORT INFORMATION
  Report Type: Spontaneous
  Country: US (occurrence: US)
  Receive Date: 20200102
  Receipt Date: 20200102
  Transmission Date: 20200409
  Serious: No
  Sender: FDA-Public Use
  Company Number: US-BAUSCH-BL-2019-065773

PATIENT
  Age: 48 Year
  Sex: Male
  Weight: 86.26 kg

DRUGS (1)
  1. LUMIFY [Suspect]
     Active Substance: BRIMONIDINE TARTRATE
     Indication: OCULAR HYPERAEMIA
     Dosage: START DATE: APPROXIMATELY 1 YEAR AGO, ONCE OR TWICE A DAY; AS NEEDED
     Route: 047

REACTIONS (4)
  - Inappropriate schedule of product administration [Unknown]
  - Eye irritation [Not Recovered/Not Resolved]
  - Vitreous floaters [Not Recovered/Not Resolved]
  - Hypoaesthesia eye [Not Recovered/Not Resolved]

NARRATIVE: CASE EVENT DATE: 2019
